FAERS Safety Report 18696667 (Version 1)
Quarter: 2021Q1

REPORT INFORMATION
  Report Type: Spontaneous
  Country: US (occurrence: US)
  Receive Date: 20210104
  Receipt Date: 20210104
  Transmission Date: 20210419
  Serious: Yes (Hospitalization)
  Sender: FDA-Public Use
  Company Number: US-BAYER-2018-108648

PATIENT
  Age: 75 Year
  Sex: Female
  Weight: 50.8 kg

DRUGS (5)
  1. PLAVIX [Suspect]
     Active Substance: CLOPIDOGREL BISULFATE
     Indication: CARDIAC DISORDER
     Dosage: 75 MG, QD
     Route: 048
     Dates: end: 201606
  2. ASPIRIN (CARDIO) [Suspect]
     Active Substance: ASPIRIN
     Indication: CARDIAC DISORDER
     Dosage: UNK
     Route: 065
     Dates: end: 201606
  3. XARELTO [Suspect]
     Active Substance: RIVAROXABAN
     Indication: CAROTID ARTERY OCCLUSION
     Dosage: 20 MG, UNK
     Route: 048
     Dates: start: 201512, end: 201607
  4. PLAVIX [Suspect]
     Active Substance: CLOPIDOGREL BISULFATE
     Indication: CARDIAC DISORDER
     Dosage: 75 MG, QD
     Route: 048
     Dates: end: 201606
  5. ASPIRIN (CARDIO) [Suspect]
     Active Substance: ASPIRIN
     Indication: CARDIAC DISORDER
     Dosage: UNK
     Route: 065
     Dates: end: 201606

REACTIONS (3)
  - Off label use [Unknown]
  - Gastrointestinal haemorrhage [Recovering/Resolving]
  - Product use in unapproved indication [Unknown]

NARRATIVE: CASE EVENT DATE: 201512
